FAERS Safety Report 19657346 (Version 1)
Quarter: 2021Q3

REPORT INFORMATION
  Report Type: Spontaneous
  Country: US (occurrence: US)
  Receive Date: 20210804
  Receipt Date: 20210804
  Transmission Date: 20211014
  Serious: No
  Sender: FDA-Public Use
  Company Number: US-BIODELIVERY SCIENCES INTERNATIONAL-2021BDSI0266

PATIENT
  Age: 71 Year
  Sex: Male
  Weight: 81.72 kg

DRUGS (3)
  1. BUPRENORPHINE. [Suspect]
     Active Substance: BUPRENORPHINE
     Indication: PAIN
     Route: 002
     Dates: start: 20210602, end: 202106
  2. BUPRENORPHINE. [Suspect]
     Active Substance: BUPRENORPHINE
     Route: 002
     Dates: start: 202106, end: 202106
  3. BUPRENORPHINE. [Suspect]
     Active Substance: BUPRENORPHINE
     Dosage: 1 FILM IN THE MORNING 2 FILMS AT NIGHT
     Route: 002
     Dates: start: 202106

REACTIONS (8)
  - Rash [Not Recovered/Not Resolved]
  - Oral administration complication [Unknown]
  - Lethargy [Not Recovered/Not Resolved]
  - Pruritus [Not Recovered/Not Resolved]
  - Therapeutic response decreased [Unknown]
  - Product administration error [Not Recovered/Not Resolved]
  - Incorrect route of product administration [Recovered/Resolved]
  - Therapeutic product effect increased [Unknown]

NARRATIVE: CASE EVENT DATE: 202106
